FAERS Safety Report 10997184 (Version 1)
Quarter: 2015Q2

REPORT INFORMATION
  Report Type: Spontaneous
  Country: US (occurrence: None)
  Receive Date: 20150407
  Receipt Date: 20150407
  Transmission Date: 20150821
  Serious: Yes (Hospitalization)
  Sender: FDA-Public Use
  Company Number: None

PATIENT
  Age: 78 Year
  Sex: Male

DRUGS (2)
  1. TAXOL [Suspect]
     Active Substance: PACLITAXEL
  2. CARBOPLATIN. [Suspect]
     Active Substance: CARBOPLATIN

REACTIONS (13)
  - Hypophagia [None]
  - Dysphagia [None]
  - Paratracheal lymphadenopathy [None]
  - Odynophagia [None]
  - Ventricular extrasystoles [None]
  - Hypothyroidism [None]
  - Chest pain [None]
  - Procedural complication [None]
  - Hypoxia [None]
  - Presyncope [None]
  - Electrocardiogram ST segment abnormal [None]
  - Unresponsive to stimuli [None]
  - Pulse absent [None]

NARRATIVE: CASE EVENT DATE: 20150324
